FAERS Safety Report 4711740-9 (Version None)
Quarter: 2005Q3

REPORT INFORMATION
  Report Type: 
  Country: None (occurrence: None)
  Receive Date: 20050708
  Receipt Date: 20050708
  Transmission Date: 20060218
  Serious: No
  Sender: FDA-Public Use
  Company Number: None

PATIENT
  Sex: Male

DRUGS (1)
  1. THIOGUANINE [Suspect]

REACTIONS (17)
  - ALANINE AMINOTRANSFERASE INCREASED [None]
  - BLOOD IRON INCREASED [None]
  - BONE MARROW DEPRESSION [None]
  - DEHYDRATION [None]
  - ERYTHEMA [None]
  - HAEMOCHROMATOSIS [None]
  - HEPATOTOXICITY [None]
  - HYPERBILIRUBINAEMIA [None]
  - LIVER DISORDER [None]
  - MUCOSAL INFLAMMATION [None]
  - PAIN [None]
  - PANCYTOPENIA [None]
  - PYREXIA [None]
  - SKIN DISCOLOURATION [None]
  - SKIN EXFOLIATION [None]
  - TRANSAMINASES INCREASED [None]
  - VENOOCCLUSIVE LIVER DISEASE [None]
